FAERS Safety Report 6966405-X (Version None)
Quarter: 2010Q3

REPORT INFORMATION
  Report Type: 
  Country: None (occurrence: None)
  Receive Date: 20100904
  Receipt Date: 20100816
  Transmission Date: 20110219
  Serious: Yes (Other)
  Sender: FDA-Public Use
  Company Number: PHFR2010GB02691

PATIENT
  Sex: Female

DRUGS (1)
  1. CLOZARIL [Suspect]
     Indication: SCHIZOPHRENIA
     Dosage: UNK
     Route: 048
     Dates: start: 20100106

REACTIONS (7)
  - BLOOD GLUCOSE INCREASED [None]
  - FURUNCLE [None]
  - INFECTION [None]
  - RASH [None]
  - SKIN LESION [None]
  - SKIN REACTION [None]
  - SKIN ULCER [None]
